FAERS Safety Report 25625781 (Version 2)
Quarter: 2025Q3

REPORT INFORMATION
  Report Type: Spontaneous
  Country: GB (occurrence: GB)
  Receive Date: 20250731
  Receipt Date: 20250904
  Transmission Date: 20251020
  Serious: Yes (Other)
  Sender: ROCHE
  Company Number: GB-ROCHE-10000351333

PATIENT
  Age: 14 Year
  Sex: Female

DRUGS (8)
  1. RISDIPLAM [Suspect]
     Active Substance: RISDIPLAM
     Indication: Spinal muscular atrophy
     Route: 048
     Dates: start: 202311
  2. DOMPERIDONE MALEATE [Concomitant]
     Active Substance: DOMPERIDONE MALEATE
  3. ALBUTEROL SULFATE [Concomitant]
     Active Substance: ALBUTEROL SULFATE
  4. OMEPRAZOLE SODIUM [Concomitant]
     Active Substance: OMEPRAZOLE SODIUM
  5. AZITHROMYCIN HEMIETHANOLATE MONOHYDRATE [Concomitant]
     Active Substance: AZITHROMYCIN HEMIETHANOLATE MONOHYDRATE
  6. NUSINERSEN [Concomitant]
     Active Substance: NUSINERSEN
  7. MIDAZOLAM HYDROCHLORIDE [Concomitant]
     Active Substance: MIDAZOLAM HYDROCHLORIDE
  8. BETNESOL [BETAMETHASONE;BETAMETHASONE SODIUM PHOSPHATE] [Concomitant]

REACTIONS (1)
  - Pancreatitis acute [Recovering/Resolving]

NARRATIVE: CASE EVENT DATE: 20250702
